FAERS Safety Report 8181669-5 (Version None)
Quarter: 2012Q1

REPORT INFORMATION
  Report Type: 
  Country: None (occurrence: None)
  Receive Date: 20120301
  Receipt Date: 20120301
  Transmission Date: 20120608
  Serious: No
  Sender: FDA-Public Use
  Company Number: None

PATIENT
  Sex: Female
  Weight: 58.0604 kg

DRUGS (2)
  1. MUCINEX [Suspect]
     Indication: RHINORRHOEA
     Dosage: 20 ML EVERY 4 HRS
     Dates: start: 20120205
  2. MUCINEX [Suspect]
     Indication: COUGH
     Dosage: 20 ML EVERY 4 HRS
     Dates: start: 20120205

REACTIONS (4)
  - BLISTER [None]
  - SWELLING FACE [None]
  - RASH ERYTHEMATOUS [None]
  - SCAB [None]
